FAERS Safety Report 21205900 (Version 1)
Quarter: 2022Q3

REPORT INFORMATION
  Report Type: Spontaneous
  Country: US (occurrence: US)
  Receive Date: 20220812
  Receipt Date: 20220812
  Transmission Date: 20221026
  Serious: Yes (Other)
  Sender: FDA-Public Use
  Company Number: US-SA-SAC20220810000839

PATIENT
  Age: 62 Year
  Sex: Female

DRUGS (2)
  1. ZANTAC [Suspect]
     Active Substance: RANITIDINE HYDROCHLORIDE
     Dosage: 75 MG,FREQUENCY-OTHER
     Dates: start: 199001
  2. ZANTAC [Suspect]
     Active Substance: RANITIDINE HYDROCHLORIDE
     Dosage: 150 MG,FREQUENCY-OTHER
     Dates: end: 201712

REACTIONS (1)
  - Breast cancer stage II [Recovering/Resolving]

NARRATIVE: CASE EVENT DATE: 20180308
